FAERS Safety Report 21062511 (Version 1)
Quarter: 2022Q3

REPORT INFORMATION
  Report Type: Spontaneous
  Country: US (occurrence: US)
  Receive Date: 20220711
  Receipt Date: 20220711
  Transmission Date: 20221026
  Serious: No
  Sender: FDA-Public Use
  Company Number: US-NOVARTISTESTPH-NVSC2022US156210

PATIENT
  Sex: Male

DRUGS (2)
  1. ENOXAPARIN SODIUM [Suspect]
     Active Substance: ENOXAPARIN SODIUM
     Indication: Product used for unknown indication
     Dosage: 60 MG, QD
     Route: 065
  2. CLONAZEPAM [Concomitant]
     Active Substance: CLONAZEPAM
     Indication: Neoplasm malignant
     Dosage: UNK
     Route: 065

REACTIONS (4)
  - Injection site bruising [Unknown]
  - Injection site pain [Unknown]
  - Injection site mass [Unknown]
  - Injection site haemorrhage [Unknown]
